FAERS Safety Report 5599783-7 (Version None)
Quarter: 2008Q1

REPORT INFORMATION
  Report Type: 
  Country: None (occurrence: None)
  Receive Date: 20080118
  Receipt Date: 20080118
  Transmission Date: 20080703
  Serious: Yes (Hospitalization)
  Sender: FDA-Public Use
  Company Number: None

PATIENT
  Age: 84 Year
  Sex: Male
  Weight: 67.13 kg

DRUGS (1)
  1. SIMVASTATIN [Suspect]
     Dosage: 80MG HS PO
     Route: 048
     Dates: start: 19971212, end: 20080108

REACTIONS (6)
  - BLOOD CREATINE PHOSPHOKINASE INCREASED [None]
  - BLOOD CREATININE INCREASED [None]
  - BLOOD UREA INCREASED [None]
  - GAIT DISTURBANCE [None]
  - HYPERKALAEMIA [None]
  - RHABDOMYOLYSIS [None]
